FAERS Safety Report 13792720 (Version 8)
Quarter: 2018Q1

REPORT INFORMATION
  Report Type: Report from Study
  Country: JP (occurrence: JP)
  Receive Date: 20170726
  Receipt Date: 20180319
  Transmission Date: 20180508
  Serious: Yes (Life-Threatening, Hospitalization, Other)
  Sender: FDA-Public Use
  Company Number: JP-ASTELLAS-2017US029637

PATIENT
  Age: 61 Year
  Sex: Male

DRUGS (9)
  1. CRESTOR [Concomitant]
     Active Substance: ROSUVASTATIN CALCIUM
     Indication: HYPERLIPIDAEMIA
     Dosage: 2.5 MG, ONCE DAILY (THE FRACTIONATION DOSE FREQUENCY IS UNCERTAIN.)
     Route: 048
     Dates: end: 20170716
  2. BAYASPIRIN [Concomitant]
     Active Substance: ASPIRIN
     Indication: PRODUCT USED FOR UNKNOWN INDICATION
     Dosage: 100 MG, ONCE DAILY (THE FRACTIONATION DOSE FREQUENCY IS UNCERTAIN)
     Route: 048
     Dates: end: 20170716
  3. BAYASPIRIN [Concomitant]
     Active Substance: ASPIRIN
     Dosage: 100 MG, ONCE DAILY (THE FRACTIONATION DOSE FREQUENCY IS UNCERTAIN.)
     Route: 048
     Dates: start: 20170720
  4. MICAFUNGIN [Concomitant]
     Active Substance: MICAFUNGIN
     Indication: PRODUCT USED FOR UNKNOWN INDICATION
     Dosage: UNK UNK, UNKNOWN FREQ.
     Route: 065
  5. ERLOTINIB [Suspect]
     Active Substance: ERLOTINIB
     Route: 048
     Dates: start: 20170222, end: 20170714
  6. VANCOMYCIN [Concomitant]
     Active Substance: VANCOMYCIN
     Indication: PRODUCT USED FOR UNKNOWN INDICATION
     Dosage: UNK, UNKNOWN FREQ.
     Route: 065
  7. ERLOTINIB [Suspect]
     Active Substance: ERLOTINIB
     Indication: LUNG ADENOCARCINOMA
     Route: 048
     Dates: start: 20160405, end: 2017
  8. ISOCORONAL R [Concomitant]
     Active Substance: ISOSORBIDE DINITRATE
     Indication: PRODUCT USED FOR UNKNOWN INDICATION
     Dosage: 40 MG, ONCE DAILY (THE FRACTIONATION DOSE FREQUENCY IS UNCERTAIN.)
     Route: 048
     Dates: end: 20170716
  9. BEVACIZUMAB. [Suspect]
     Active Substance: BEVACIZUMAB
     Indication: LUNG ADENOCARCINOMA
     Dosage: 900 MG, UNKNOWN FREQ. (15 MG/KG, DOSE INTERVAL UNCERTAINTY)
     Route: 041
     Dates: start: 20160405, end: 20170627

REACTIONS (9)
  - Blood pressure decreased [Recovering/Resolving]
  - Hypernatraemia [Recovering/Resolving]
  - Diabetes insipidus [Recovering/Resolving]
  - Incarcerated inguinal hernia [Recovering/Resolving]
  - Thyroiditis [Unknown]
  - Peritonitis [Recovered/Resolved]
  - Septic shock [Unknown]
  - Rash [Recovering/Resolving]
  - Large intestine perforation [Recovered/Resolved]

NARRATIVE: CASE EVENT DATE: 20160426
